FAERS Safety Report 8877597 (Version 1)
Quarter: 2012Q4

REPORT INFORMATION
  Report Type: Spontaneous
  Country: US (occurrence: None)
  Receive Date: 20121031
  Receipt Date: 20121031
  Transmission Date: 20130627
  Serious: Yes (Other)
  Sender: FDA-Public Use
  Company Number: None

PATIENT
  Age: 79 Year
  Sex: Male
  Weight: 82.1 kg

DRUGS (1)
  1. PROVENGE [Suspect]
     Indication: PROSTATE CANCER METASTATIC
     Dosage: One unit EOW x3
     Route: 042
     Dates: start: 20121026, end: 20121026

REACTIONS (4)
  - Feeling cold [None]
  - Tremor [None]
  - Infusion related reaction [None]
  - Blood pressure increased [None]
